FAERS Safety Report 24671571 (Version 1)
Quarter: 2024Q4

REPORT INFORMATION
  Report Type: Spontaneous
  Country: US (occurrence: US)
  Receive Date: 20241127
  Receipt Date: 20241127
  Transmission Date: 20250115
  Serious: Yes (Death, Hospitalization)
  Sender: ELI LILLY AND COMPANY
  Company Number: US-ELI_LILLY_AND_COMPANY-US202411016211

PATIENT
  Age: 69 Year
  Sex: Male

DRUGS (2)
  1. ERBITUX [Suspect]
     Active Substance: CETUXIMAB
     Indication: Head and neck cancer
     Dosage: 20 MG/M2, SINGLE
     Route: 042
     Dates: start: 20241112, end: 20241112
  2. BENADRYL [Concomitant]
     Active Substance: DIPHENHYDRAMINE HYDROCHLORIDE
     Indication: Premedication
     Dosage: UNK UNK, UNKNOWN
     Route: 065
     Dates: start: 20241112, end: 20241112

REACTIONS (2)
  - Cardiac disorder [Fatal]
  - Lung disorder [Fatal]

NARRATIVE: CASE EVENT DATE: 20241112
